FAERS Safety Report 6886970-0 (Version None)
Quarter: 2010Q3

REPORT INFORMATION
  Report Type: 
  Country: None (occurrence: None)
  Receive Date: 20100730
  Receipt Date: 20100720
  Transmission Date: 20110219
  Serious: Yes (Other)
  Sender: FDA-Public Use
  Company Number: US-JNJFOC-20100706311

PATIENT
  Sex: Female

DRUGS (2)
  1. TYLENOL (CAPLET) [Suspect]
     Indication: GASTROINTESTINAL DISORDER
     Route: 048
  2. TYLENOL (CAPLET) [Suspect]
     Indication: CROHN'S DISEASE
     Route: 048

REACTIONS (2)
  - HAEMATOCHEZIA [None]
  - PRODUCT QUALITY ISSUE [None]
